FAERS Safety Report 20160069 (Version 1)
Quarter: 2021Q4

REPORT INFORMATION
  Report Type: Spontaneous
  Country: US (occurrence: US)
  Receive Date: 20211208
  Receipt Date: 20211208
  Transmission Date: 20220303
  Serious: No
  Sender: FDA-Public Use
  Company Number: US-MICRO LABS LIMITED-ML2021-02402

PATIENT
  Sex: Female

DRUGS (1)
  1. DORZOLAMIDE\TIMOLOL [Suspect]
     Active Substance: DORZOLAMIDE\TIMOLOL
     Indication: Glaucoma
     Dosage: STRENGTH: 22.3 MG/ 6.8 MG PER ML, FREQUENCY: 2 TIMES DAILY IN BOTH EYES
     Route: 047

REACTIONS (2)
  - Eye irritation [Not Recovered/Not Resolved]
  - Product container issue [Unknown]
